FAERS Safety Report 4391150-7 (Version None)
Quarter: 2004Q3

REPORT INFORMATION
  Report Type: 
  Country: None (occurrence: None)
  Receive Date: 20040707
  Receipt Date: 20031014
  Transmission Date: 20050211
  Serious: Yes (Disabling, Other)
  Sender: FDA-Public Use
  Company Number: JP-BRISTOL-MYERS SQUIBB COMPANY-12415378

PATIENT
  Age: 32 Year
  Sex: Male

DRUGS (20)
  1. STOCRIN CAPS [Suspect]
     Indication: HIV INFECTION
     Route: 048
     Dates: start: 19990823, end: 20030331
  2. ZERIT [Suspect]
     Indication: HIV INFECTION
     Dosage: INITIATED AT 60 MG, INCREASED TO 80 MG ON 03-FEB-2000
     Route: 048
     Dates: start: 19990823, end: 20030331
  3. EPIVIR [Suspect]
     Indication: HIV INFECTION
     Route: 048
     Dates: start: 19990823, end: 20030331
  4. THIAMAZOLE [Suspect]
     Indication: HYPERTHYROIDISM
  5. PROPRANOLOL HCL [Suspect]
     Indication: HYPERTHYROIDISM
  6. CLARITHROMYCIN [Concomitant]
     Dates: start: 19990715, end: 20020612
  7. COLD REMEDY [Concomitant]
     Dates: start: 20020519, end: 20020523
  8. SULFAMETHOXAZOLE AND TRIMETHOPRIM [Concomitant]
     Dates: start: 19990701, end: 20020612
  9. MUCODYNE [Concomitant]
     Dates: start: 20020618, end: 20020618
  10. CEFCAPENE PIVOXIL HCL [Concomitant]
     Dates: start: 20020613, end: 20020618
  11. ZYRTEC [Concomitant]
     Dates: start: 20030306, end: 20030331
  12. ETHAMBUTOL HCL [Concomitant]
     Dates: start: 20000301
  13. ALLEGRA [Concomitant]
     Dates: start: 20030206, end: 20030305
  14. DENOSINE [Concomitant]
     Dates: start: 19991021, end: 20000908
  15. INDINAVIR SULFATE [Concomitant]
     Dates: start: 20001216, end: 20010314
  16. ISONIAZID [Concomitant]
     Dates: start: 20000301
  17. OLOPATADINE HCL [Concomitant]
     Dates: start: 20030109, end: 20030205
  18. PYRAZINAMIDE [Concomitant]
     Dates: start: 20000301
  19. RIFABUTIN [Concomitant]
     Dates: start: 20000301
  20. NORVIR [Concomitant]
     Dates: start: 20001216, end: 20010314

REACTIONS (12)
  - ATYPICAL MYCOBACTERIAL LYMPHADENITIS [None]
  - BASEDOW'S DISEASE [None]
  - BLOOD ALKALINE PHOSPHATASE INCREASED [None]
  - CYTOMEGALOVIRUS GASTRITIS [None]
  - CYTOMEGALOVIRUS OESOPHAGITIS [None]
  - HYPERTHYROIDISM [None]
  - IMMUNE RECONSTITUTION SYNDROME [None]
  - LUNG NEOPLASM [None]
  - LYMPH NODE TUBERCULOSIS [None]
  - OESOPHAGEAL ULCER [None]
  - PNEUMONIA CYTOMEGALOVIRAL [None]
  - RASH [None]
